FAERS Safety Report 7107317-0 (Version None)
Quarter: 2010Q4

REPORT INFORMATION
  Report Type: 
  Country: None (occurrence: None)
  Receive Date: 20101117
  Receipt Date: 20101108
  Transmission Date: 20110411
  Serious: Yes (Hospitalization)
  Sender: FDA-Public Use
  Company Number: US-BIOGENIDEC-2010BI039407

PATIENT
  Sex: Female

DRUGS (1)
  1. TYSABRI [Suspect]
     Indication: MULTIPLE SCLEROSIS
     Dates: start: 20080131

REACTIONS (4)
  - AUTOMATIC BLADDER [None]
  - MULTIPLE SCLEROSIS [None]
  - PERONEAL NERVE PALSY [None]
  - SPONDYLITIS [None]
